FAERS Safety Report 6695235-1 (Version None)
Quarter: 2010Q2

REPORT INFORMATION
  Report Type: 
  Country: None (occurrence: None)
  Receive Date: 20100423
  Receipt Date: 20100412
  Transmission Date: 20101027
  Serious: Yes (Other)
  Sender: FDA-Public Use
  Company Number: AU-ELI_LILLY_AND_COMPANY-AU201004003360

PATIENT
  Age: 47 Year
  Sex: Male

DRUGS (4)
  1. EFFIENT [Suspect]
     Dosage: 60 MG, UNKNOWN
     Route: 065
     Dates: start: 20100401
  2. REOPRO [Concomitant]
     Dosage: UNK, UNKNOWN
     Route: 065
     Dates: start: 20100401
  3. CLOPIDOGREL [Concomitant]
     Dosage: UNK, UNKNOWN
     Route: 065
  4. HEPARIN [Concomitant]
     Dosage: UNK, UNKNOWN
     Route: 065

REACTIONS (2)
  - HAEMORRHAGE [None]
  - MEDICAL DEVICE COMPLICATION [None]
